FAERS Safety Report 8465884-9 (Version None)
Quarter: 2012Q2

REPORT INFORMATION
  Report Type: 
  Country: None (occurrence: None)
  Receive Date: 20120626
  Receipt Date: 20120619
  Transmission Date: 20120825
  Serious: Yes (Hospitalization, Other)
  Sender: FDA-Public Use
  Company Number: US-BAYER-2012-062002

PATIENT
  Age: 38 Year
  Sex: Female

DRUGS (1)
  1. ULTRAVIST 150 [Suspect]
     Indication: INVESTIGATION
     Dosage: UNK
     Route: 042
     Dates: start: 20120616, end: 20120616

REACTIONS (1)
  - URTICARIA [None]
